FAERS Safety Report 19216085 (Version 1)
Quarter: 2021Q2

REPORT INFORMATION
  Report Type: Spontaneous
  Country: ES (occurrence: ES)
  Receive Date: 20210505
  Receipt Date: 20210505
  Transmission Date: 20210717
  Serious: Yes (Hospitalization)
  Sender: FDA-Public Use
  Company Number: ES-CADILA HEALTHCARE LIMITED-ES-ZYDUS-065214

PATIENT

DRUGS (1)
  1. DULOXETINE. [Suspect]
     Active Substance: DULOXETINE
     Indication: SUICIDAL IDEATION
     Dosage: 30 MILLIGRAM
     Route: 065

REACTIONS (2)
  - Opsoclonus myoclonus [Recovered/Resolved]
  - Intentional overdose [Recovered/Resolved]
